FAERS Safety Report 16282388 (Version 1)
Quarter: 2019Q2

REPORT INFORMATION
  Report Type: Spontaneous
  Country: US (occurrence: US)
  Receive Date: 20190507
  Receipt Date: 20190507
  Transmission Date: 20190711
  Serious: No
  Sender: FDA-Public Use
  Company Number: US-SOLARIS PHARMA-2019RIS00165

PATIENT
  Sex: Female
  Weight: 75.74 kg

DRUGS (1)
  1. CLOBETASOL PROPIONATE. [Suspect]
     Active Substance: CLOBETASOL PROPIONATE
     Indication: RASH

REACTIONS (5)
  - Erythema [Recovered/Resolved]
  - Skin irritation [Unknown]
  - Skin burning sensation [Unknown]
  - Feeling hot [Recovered/Resolved]
  - Rash [Unknown]
